FAERS Safety Report 4703741-1 (Version None)
Quarter: 2005Q2

REPORT INFORMATION
  Report Type: 
  Country: None (occurrence: None)
  Receive Date: 20050628
  Receipt Date: 20050610
  Transmission Date: 20051028
  Serious: Yes (Hospitalization)
  Sender: FDA-Public Use
  Company Number: USA050699673

PATIENT
  Age: 68 Year
  Sex: Female

DRUGS (2)
  1. EVISTA [Suspect]
  2. ACTONEL [Concomitant]

REACTIONS (3)
  - COMPRESSION FRACTURE [None]
  - FOOT FRACTURE [None]
  - INTESTINAL OBSTRUCTION [None]
